FAERS Safety Report 6900759-5 (Version None)
Quarter: 2010Q3

REPORT INFORMATION
  Report Type: 
  Country: None (occurrence: None)
  Receive Date: 20100803
  Receipt Date: 20100726
  Transmission Date: 20110219
  Serious: Yes (Hospitalization)
  Sender: FDA-Public Use
  Company Number: DE-JNJFOC-20100603169

PATIENT
  Age: 72 Year
  Sex: Male

DRUGS (10)
  1. RISPERDAL [Suspect]
     Indication: PRODUCT USED FOR UNKNOWN INDICATION
     Route: 048
  2. RISPERDAL [Suspect]
     Route: 048
  3. RISPERDAL [Suspect]
     Route: 048
  4. RISPERDAL [Suspect]
     Route: 048
  5. RISPERDAL [Suspect]
     Route: 048
  6. CIPRAMIL [Interacting]
     Indication: PRODUCT USED FOR UNKNOWN INDICATION
     Route: 048
  7. CIPRAMIL [Interacting]
     Route: 048
  8. CIPRAMIL [Interacting]
     Route: 048
  9. CIPRAMIL [Interacting]
     Route: 048
  10. FALITHROM [Concomitant]
     Route: 048

REACTIONS (5)
  - COUGH [None]
  - DRUG INTERACTION [None]
  - DYSPHAGIA [None]
  - DYSPHONIA [None]
  - SALIVARY HYPERSECRETION [None]
